FAERS Safety Report 7323635-5 (Version None)
Quarter: 2011Q1

REPORT INFORMATION
  Report Type: 
  Country: None (occurrence: None)
  Receive Date: 20110301
  Receipt Date: 20110218
  Transmission Date: 20110831
  Serious: Yes (Hospitalization)
  Sender: FDA-Public Use
  Company Number: JP-ROCHE-762341

PATIENT
  Age: 56 Year
  Sex: Female

DRUGS (3)
  1. ELPLAT [Suspect]
     Route: 041
     Dates: start: 20110218
  2. ELPLAT [Suspect]
     Indication: LARGE INTESTINE CARCINOMA
     Dosage: DOSAGE UNCERTAIN
     Route: 041
     Dates: start: 20101001
  3. AVASTIN [Suspect]
     Indication: LARGE INTESTINE CARCINOMA
     Dosage: DOSAGE UNCERTAIN
     Route: 041
     Dates: start: 20101001

REACTIONS (3)
  - RASH [None]
  - NEUROPATHY PERIPHERAL [None]
  - ASTHMA [None]
